FAERS Safety Report 21986582 (Version 1)
Quarter: 2023Q1

REPORT INFORMATION
  Report Type: Spontaneous
  Country: US (occurrence: None)
  Receive Date: 20230210
  Receipt Date: 20230210
  Transmission Date: 20230418
  Serious: Yes (Other)
  Sender: FDA-Public Use
  Company Number: None

PATIENT
  Age: 24 Year
  Sex: Male
  Weight: 72 kg

DRUGS (6)
  1. DIVALPROEX SODIUM [Suspect]
     Active Substance: DIVALPROEX SODIUM
     Indication: Partial seizures
     Dates: start: 201301
  2. PREVACID [Concomitant]
     Active Substance: LANSOPRAZOLE
  3. CITALOPRAM [Concomitant]
     Active Substance: CITALOPRAM HYDROBROMIDE
  4. Penasa [Concomitant]
  5. BYSTOLIC [Concomitant]
     Active Substance: NEBIVOLOL HYDROCHLORIDE
  6. CLONIDINE [Concomitant]
     Active Substance: CLONIDINE

REACTIONS (4)
  - Product solubility abnormal [None]
  - Product physical issue [None]
  - Change in seizure presentation [None]
  - Product substitution issue [None]

NARRATIVE: CASE EVENT DATE: 20190101
